FAERS Safety Report 11141801 (Version 1)
Quarter: 2015Q2

REPORT INFORMATION
  Report Type: Spontaneous
  Country: US (occurrence: None)
  Receive Date: 20150526
  Receipt Date: 20150526
  Transmission Date: 20150821
  Serious: Yes (Life-Threatening, Disabling)
  Sender: FDA-Public Use
  Company Number: None

PATIENT
  Age: 67 Year
  Sex: Female

DRUGS (5)
  1. GLYB/METFORMIN [Concomitant]
  2. PACE MAKER (NOT SURE IF BRAND) [Concomitant]
  3. CEFUROXIME ANTIBIOTIC 500MG [Suspect]
     Active Substance: CEFUROXIME
     Indication: INFECTION
     Route: 048
     Dates: start: 20150520
  4. SOTALOL. [Concomitant]
     Active Substance: SOTALOL
  5. WARFARIN [Concomitant]
     Active Substance: WARFARIN

REACTIONS (1)
  - Blood glucose decreased [None]

NARRATIVE: CASE EVENT DATE: 20150519
